FAERS Safety Report 20612506 (Version 3)
Quarter: 2022Q2

REPORT INFORMATION
  Report Type: Spontaneous
  Country: US (occurrence: US)
  Receive Date: 20220318
  Receipt Date: 20220506
  Transmission Date: 20220720
  Serious: No
  Sender: FDA-Public Use
  Company Number: US-ALKERMES INC.-ALK-2022-001256

PATIENT
  Age: 53 Year
  Sex: Male
  Weight: 89.796 kg

DRUGS (2)
  1. ARISTADA [Suspect]
     Active Substance: ARIPIPRAZOLE LAUROXIL
     Indication: Bipolar disorder
     Dosage: 882 MILLIGRAM, QMO
     Route: 030
     Dates: start: 20220503
  2. ARISTADA [Suspect]
     Active Substance: ARIPIPRAZOLE LAUROXIL
     Dosage: 882 MILLIGRAM, QMO
     Route: 030
     Dates: start: 20210706, end: 20210706

REACTIONS (2)
  - Feeling jittery [Recovered/Resolved]
  - Insomnia [Recovered/Resolved]

NARRATIVE: CASE EVENT DATE: 20220419
